FAERS Safety Report 17154318 (Version 1)
Quarter: 2019Q4

REPORT INFORMATION
  Report Type: Spontaneous
  Country: US (occurrence: US)
  Receive Date: 20191213
  Receipt Date: 20191213
  Transmission Date: 20200122
  Serious: Yes (Hospitalization)
  Sender: FDA-Public Use
  Company Number: US-B.I. PHARMACEUTICALS,INC./RIDGEFIELD-2019-BI-120180

PATIENT
  Age: 69 Year
  Sex: Female
  Weight: 163 kg

DRUGS (1)
  1. PRAXBIND [Suspect]
     Active Substance: IDARUCIZUMAB
     Indication: PROCOAGULANT THERAPY
     Dosage: TOTAL DAILY DOSE- 5G (2 X 2.5G)
     Route: 042

REACTIONS (2)
  - End stage renal disease [Not Recovered/Not Resolved]
  - Thrombin time abnormal [Recovered/Resolved]
